FAERS Safety Report 9955877 (Version 1)
Quarter: 2014Q1

REPORT INFORMATION
  Report Type: Spontaneous
  Country: US (occurrence: US)
  Receive Date: 20140304
  Receipt Date: 20140304
  Transmission Date: 20141002
  Serious: No
  Sender: FDA-Public Use
  Company Number: US-ABBVIE-13P-163-1082878-00

PATIENT
  Age: 73 Year
  Sex: Female
  Weight: 95.34 kg

DRUGS (11)
  1. HUMIRA [Suspect]
     Indication: PSORIASIS
     Dates: start: 201303
  2. INDERAL [Concomitant]
     Indication: MIGRAINE
  3. ELAVIL [Concomitant]
     Indication: MIGRAINE
  4. METFORMIN [Concomitant]
     Indication: GLUCOSE TOLERANCE IMPAIRED
  5. PEROXITINE [Concomitant]
     Indication: DEPRESSION
  6. LIPITOR [Concomitant]
     Indication: HYPERLIPIDAEMIA
  7. SAVELLA [Concomitant]
     Indication: FIBROMYALGIA
  8. METHOCABAMOL [Concomitant]
     Indication: FIBROMYALGIA
  9. FLUDROCORTISONE [Concomitant]
     Indication: HYPERTENSION
  10. PANTOPRAZOLE [Concomitant]
     Indication: GASTROOESOPHAGEAL REFLUX DISEASE
  11. NITRO-BID OINTMENT [Concomitant]
     Indication: PROPHYLAXIS

REACTIONS (4)
  - Hypothyroidism [Not Recovered/Not Resolved]
  - Swelling [Not Recovered/Not Resolved]
  - Injection site rash [Not Recovered/Not Resolved]
  - Injection site pruritus [Not Recovered/Not Resolved]
